FAERS Safety Report 17800163 (Version 2)
Quarter: 2020Q2

REPORT INFORMATION
  Report Type: Spontaneous
  Country: US (occurrence: US)
  Receive Date: 20200518
  Receipt Date: 20200519
  Transmission Date: 20200714
  Serious: Yes (Other)
  Sender: FDA-Public Use
  Company Number: US-PFIZER INC-2020195797

PATIENT
  Age: 77 Year
  Sex: Male

DRUGS (3)
  1. GABAPENTIN. [Suspect]
     Active Substance: GABAPENTIN
     Dosage: 300 MG, DAILY
  2. GABAPENTIN. [Suspect]
     Active Substance: GABAPENTIN
     Dosage: 600 MG, DAILY
  3. GABAPENTIN. [Suspect]
     Active Substance: GABAPENTIN
     Dosage: 900 MG, DAILY

REACTIONS (8)
  - Fatigue [Unknown]
  - Choking [Unknown]
  - Product confusion [Unknown]
  - Abnormal behaviour [Unknown]
  - Malaise [Unknown]
  - Vomiting [Unknown]
  - Memory impairment [Unknown]
  - Nausea [Unknown]
